FAERS Safety Report 4888138-6 (Version None)
Quarter: 2006Q1

REPORT INFORMATION
  Report Type: 
  Country: None (occurrence: None)
  Receive Date: 20060123
  Receipt Date: 20060112
  Transmission Date: 20060701
  Serious: Yes (Hospitalization, Other)
  Sender: FDA-Public Use
  Company Number: US-MERCK-0601USA01491

PATIENT
  Age: 51 Year
  Sex: Female
  Weight: 57 kg

DRUGS (5)
  1. VIOXX [Suspect]
     Indication: ARTHRITIS
     Route: 048
     Dates: start: 20000201, end: 20040930
  2. AMBIEN [Concomitant]
     Route: 065
  3. PLAQUENIL [Concomitant]
     Route: 065
  4. PREDNISONE [Concomitant]
     Route: 065
  5. PRILOSEC [Concomitant]
     Route: 065

REACTIONS (8)
  - CHEST PAIN [None]
  - CHOLECYSTITIS [None]
  - GLOMERULONEPHRITIS [None]
  - MUSCULOSKELETAL CHEST PAIN [None]
  - MYOCARDIAL INFARCTION [None]
  - PEPTIC ULCER [None]
  - PERICARDITIS [None]
  - PYELONEPHRITIS [None]
